FAERS Safety Report 5564707-5 (Version None)
Quarter: 2007Q4

REPORT INFORMATION
  Report Type: 
  Country: None (occurrence: None)
  Receive Date: 20071218
  Receipt Date: 20071204
  Transmission Date: 20080405
  Serious: Yes (Hospitalization)
  Sender: FDA-Public Use
  Company Number: US-ELI_LILLY_AND_COMPANY-US200712001276

PATIENT
  Sex: Female

DRUGS (1)
  1. FORTEO [Suspect]

REACTIONS (9)
  - DRUG INTOLERANCE [None]
  - DYSPHAGIA [None]
  - EATING DISORDER [None]
  - HOSPITALISATION [None]
  - MALAISE [None]
  - MEMORY IMPAIRMENT [None]
  - MOBILITY DECREASED [None]
  - OESOPHAGEAL ULCER [None]
  - THROAT TIGHTNESS [None]
